FAERS Safety Report 24293439 (Version 1)
Quarter: 2024Q3

REPORT INFORMATION
  Report Type: Spontaneous
  Country: US (occurrence: None)
  Receive Date: 20240906
  Receipt Date: 20240906
  Transmission Date: 20241017
  Serious: No
  Sender: DOMPE FARMACEUTICI
  Company Number: US-FARMAPROD-202401-0146

PATIENT
  Sex: Male

DRUGS (14)
  1. OXERVATE [Suspect]
     Active Substance: CENEGERMIN-BKBJ
     Indication: Neurotrophic keratopathy
     Route: 047
     Dates: start: 20240104
  2. OXERVATE [Suspect]
     Active Substance: CENEGERMIN-BKBJ
  3. METOPROLOL SUCCINATE [Concomitant]
     Active Substance: METOPROLOL SUCCINATE
  4. POTASSIUM CHLORIDE [Concomitant]
     Active Substance: POTASSIUM CHLORIDE
     Dosage: PACKET
  5. AMLODIPINE BESYLATE [Concomitant]
     Active Substance: AMLODIPINE BESYLATE
  6. ERGOCALCIFEROL [Concomitant]
     Active Substance: ERGOCALCIFEROL
  7. VELPHORO [Concomitant]
     Active Substance: SUCROFERRIC OXYHYDROXIDE
  8. VITAMINS [Concomitant]
     Active Substance: VITAMINS
     Dosage: 0.8-12.5MG
  9. CLOPIDOGREL [Concomitant]
     Active Substance: CLOPIDOGREL BISULFATE
  10. INSULIN NEUTRAL PROTAMINE HAGEDORN [Concomitant]
  11. LISINOPRIL [Concomitant]
     Active Substance: LISINOPRIL
  12. ELIQUIS [Concomitant]
     Active Substance: APIXABAN
  13. JANUVIA [Concomitant]
     Active Substance: SITAGLIPTIN PHOSPHATE
  14. HUMULIN N [Concomitant]
     Active Substance: INSULIN HUMAN
     Dosage: KIWIPEN 100/ML (3) INSULIN PEN

REACTIONS (2)
  - Product dose omission issue [Unknown]
  - Device use issue [Unknown]
